FAERS Safety Report 11264321 (Version 1)
Quarter: 2015Q3

REPORT INFORMATION
  Report Type: Spontaneous
  Country: US (occurrence: US)
  Receive Date: 20150713
  Receipt Date: 20150713
  Transmission Date: 20151125
  Serious: No
  Sender: FDA-Public Use
  Company Number: US-JNJFOC-20150701138

PATIENT
  Age: 71 Year
  Sex: Female
  Weight: 64.41 kg

DRUGS (4)
  1. WARFARIN [Interacting]
     Active Substance: WARFARIN
     Indication: HEART RATE IRREGULAR
     Route: 065
  2. IMODIUM MULTI-SYMPTOM RELIEF [Suspect]
     Active Substance: DIMETHICONE\LOPERAMIDE HYDROCHLORIDE
     Route: 048
  3. IMODIUM MULTI-SYMPTOM RELIEF [Suspect]
     Active Substance: DIMETHICONE\LOPERAMIDE HYDROCHLORIDE
     Indication: DIARRHOEA
     Dosage: 1-2 CAPLETS AS NEEDED
     Route: 048
     Dates: end: 20150630
  4. WARFARIN [Interacting]
     Active Substance: WARFARIN
     Indication: HEART RATE IRREGULAR
     Route: 065

REACTIONS (3)
  - Product label issue [Unknown]
  - Laboratory test abnormal [Unknown]
  - Drug interaction [Unknown]

NARRATIVE: CASE EVENT DATE: 20150630
